FAERS Safety Report 19640104 (Version 1)
Quarter: 2021Q3

REPORT INFORMATION
  Report Type: Spontaneous
  Country: US (occurrence: US)
  Receive Date: 20210729
  Receipt Date: 20210729
  Transmission Date: 20211014
  Serious: No
  Sender: FDA-Public Use
  Company Number: US-PERRIGO-21US001383

PATIENT
  Sex: Male
  Weight: 63.49 kg

DRUGS (3)
  1. MINOXIDIL. [Suspect]
     Active Substance: MINOXIDIL
     Indication: ALOPECIA
     Dosage: 1 ML, BID
     Route: 061
     Dates: start: 202004, end: 2020
  2. MINOXIDIL. [Suspect]
     Active Substance: MINOXIDIL
     Dosage: 1 ML, QD
     Route: 061
     Dates: start: 2020, end: 2020
  3. MINOXIDIL. [Suspect]
     Active Substance: MINOXIDIL
     Dosage: 1 ML, EVERY COUPLE DAYS
     Route: 061
     Dates: start: 2020, end: 202012

REACTIONS (5)
  - Application site pruritus [Recovered/Resolved]
  - Application site irritation [Not Recovered/Not Resolved]
  - Inappropriate schedule of product administration [Recovered/Resolved]
  - Application site scab [Not Recovered/Not Resolved]
  - Skin sensitisation [Not Recovered/Not Resolved]

NARRATIVE: CASE EVENT DATE: 2020
